FAERS Safety Report 21802558 (Version 4)
Quarter: 2023Q2

REPORT INFORMATION
  Report Type: Report from Study
  Country: JP (occurrence: JP)
  Receive Date: 20221231
  Receipt Date: 20230629
  Transmission Date: 20230721
  Serious: Yes (Hospitalization, Other)
  Sender: FDA-Public Use
  Company Number: JP-CELLTRION INC.-2022JP021875

PATIENT

DRUGS (44)
  1. TRASTUZUMAB [Suspect]
     Active Substance: TRASTUZUMAB
     Indication: HER2 positive gastric cancer
     Dosage: 323 MILLIGRAM, QD
     Route: 041
     Dates: start: 20220606, end: 20220606
  2. TRASTUZUMAB [Suspect]
     Active Substance: TRASTUZUMAB
     Dosage: 323 MILLIGRAM, QD
     Route: 041
     Dates: start: 20220711, end: 20220711
  3. TRASTUZUMAB [Suspect]
     Active Substance: TRASTUZUMAB
     Dosage: 323 MILLIGRAM, QD
     Route: 041
     Dates: start: 20220808, end: 20220808
  4. TRASTUZUMAB [Suspect]
     Active Substance: TRASTUZUMAB
     Dosage: 234 MILLIGRAM, QD
     Route: 041
     Dates: start: 20220906, end: 20220906
  5. TRASTUZUMAB [Suspect]
     Active Substance: TRASTUZUMAB
     Dosage: 234 MILLIGRAM, QD
     Route: 041
     Dates: start: 20221003, end: 20221003
  6. TRASTUZUMAB [Suspect]
     Active Substance: TRASTUZUMAB
     Dosage: 234 MILLIGRAM, QD
     Route: 041
     Dates: start: 20221024, end: 20221024
  7. TRASTUZUMAB [Suspect]
     Active Substance: TRASTUZUMAB
     Dosage: 234 MILLIGRAM, QD
     Route: 041
     Dates: start: 20221114, end: 20221114
  8. TRASTUZUMAB [Suspect]
     Active Substance: TRASTUZUMAB
     Dosage: 234 MILLIGRAM, QD
     Route: 041
     Dates: start: 20221205, end: 20221205
  9. TRASTUZUMAB [Suspect]
     Active Substance: TRASTUZUMAB
     Dosage: 234 MILLIGRAM, QD
     Route: 041
     Dates: start: 20221226, end: 20221226
  10. TRASTUZUMAB [Suspect]
     Active Substance: TRASTUZUMAB
     Dosage: 239 MILLIGRAM, QD
     Route: 041
     Dates: start: 20230116, end: 20230116
  11. TRASTUZUMAB [Suspect]
     Active Substance: TRASTUZUMAB
     Dosage: 239 MILLIGRAM, QD
     Route: 041
     Dates: start: 20230206, end: 20230206
  12. TRASTUZUMAB [Suspect]
     Active Substance: TRASTUZUMAB
     Dosage: 239 MILLIGRAM, QD
     Route: 041
     Dates: start: 20230227, end: 20230227
  13. TRASTUZUMAB [Suspect]
     Active Substance: TRASTUZUMAB
     Dosage: 239 MILLIGRAM, QD
     Route: 041
     Dates: start: 20230323, end: 20230323
  14. TRASTUZUMAB [Suspect]
     Active Substance: TRASTUZUMAB
     Dosage: 239 MILLIGRAM, QD
     Route: 041
     Dates: start: 20230413, end: 20230413
  15. TRASTUZUMAB [Suspect]
     Active Substance: TRASTUZUMAB
     Dosage: 239 MILLIGRAM, QD
     Route: 041
     Dates: start: 20230511, end: 20230511
  16. TRASTUZUMAB [Suspect]
     Active Substance: TRASTUZUMAB
     Dosage: 239 MILLIGRAM, QD
     Route: 041
     Dates: start: 20230601, end: 20230601
  17. OXALIPLATIN [Suspect]
     Active Substance: OXALIPLATIN
     Indication: HER2 positive gastric cancer
     Dosage: 105 MILLIGRAM, QD
     Route: 041
     Dates: start: 20220606, end: 20220606
  18. OXALIPLATIN [Suspect]
     Active Substance: OXALIPLATIN
     Dosage: 79 MILLIGRAM, QD
     Route: 041
     Dates: start: 20220711, end: 20220711
  19. OXALIPLATIN [Suspect]
     Active Substance: OXALIPLATIN
     Dosage: 65 MILLIGRAM, QD
     Route: 041
     Dates: start: 20220808, end: 20220808
  20. OXALIPLATIN [Suspect]
     Active Substance: OXALIPLATIN
     Dosage: 65 MILLIGRAM, QD
     Route: 041
     Dates: start: 20220906, end: 20220906
  21. OXALIPLATIN [Suspect]
     Active Substance: OXALIPLATIN
     Dosage: 65 MILLIGRAM, QD
     Route: 041
     Dates: start: 20221003, end: 20221003
  22. OXALIPLATIN [Suspect]
     Active Substance: OXALIPLATIN
     Dosage: 65 MILLIGRAM, QD
     Route: 041
     Dates: start: 20221024, end: 20221024
  23. OXALIPLATIN [Suspect]
     Active Substance: OXALIPLATIN
     Dosage: 65 MILLIGRAM, QD
     Route: 041
     Dates: start: 20221114, end: 20221114
  24. OXALIPLATIN [Suspect]
     Active Substance: OXALIPLATIN
     Dosage: 65 MILLIGRAM, QD
     Route: 041
     Dates: start: 20221205, end: 20221205
  25. OXALIPLATIN [Suspect]
     Active Substance: OXALIPLATIN
     Dosage: 65 MILLIGRAM, QD
     Route: 041
     Dates: start: 20221226, end: 20221226
  26. OXALIPLATIN [Suspect]
     Active Substance: OXALIPLATIN
     Dosage: 65 MILLIGRAM, QD
     Route: 041
     Dates: start: 20230116, end: 20230116
  27. OXALIPLATIN [Suspect]
     Active Substance: OXALIPLATIN
     Dosage: 65 MILLIGRAM, QD
     Route: 041
     Dates: start: 20230206, end: 20230206
  28. OXALIPLATIN [Suspect]
     Active Substance: OXALIPLATIN
     Dosage: 65 MILLIGRAM, QD
     Route: 041
     Dates: start: 20230227, end: 20230227
  29. OXALIPLATIN [Suspect]
     Active Substance: OXALIPLATIN
     Dosage: 65 MILLIGRAM, QD
     Route: 041
     Dates: start: 20230323, end: 20230323
  30. OXALIPLATIN [Suspect]
     Active Substance: OXALIPLATIN
     Dosage: 65 MILLIGRAM, QD
     Route: 041
     Dates: start: 20230413, end: 20230413
  31. OXALIPLATIN [Suspect]
     Active Substance: OXALIPLATIN
     Dosage: 65 MILLIGRAM, QD
     Route: 041
     Dates: start: 20230511, end: 20230511
  32. OXALIPLATIN [Suspect]
     Active Substance: OXALIPLATIN
     Dosage: 65 MILLIGRAM, QD
     Route: 041
     Dates: start: 20230601, end: 20230601
  33. AMINO ACIDS\CARBOHYDRATES\MINERALS\SOYBEAN OIL\VITAMINS [Concomitant]
     Active Substance: AMINO ACIDS\CARBOHYDRATES\MINERALS\SOYBEAN OIL\VITAMINS
     Indication: Decreased appetite
     Dosage: UNK
  34. MOSAPRIDE CITRATE [Concomitant]
     Active Substance: MOSAPRIDE CITRATE
     Indication: Procedural pain
     Dosage: UNK
  35. METHYLCOBALAMIN [Concomitant]
     Active Substance: METHYLCOBALAMIN
     Dosage: UNK
     Dates: end: 20230511
  36. APREPITANT [Concomitant]
     Active Substance: APREPITANT
     Dosage: UNK
     Dates: start: 20220606, end: 202212
  37. APREPITANT [Concomitant]
     Active Substance: APREPITANT
     Dosage: UNK
     Dates: start: 20220607, end: 202212
  38. DECADRON [Concomitant]
     Active Substance: DEXAMETHASONE
     Indication: Prophylaxis of nausea and vomiting
     Dosage: UNK
     Dates: start: 20220607, end: 202304
  39. METOCLOPRAMIDE [Concomitant]
     Active Substance: METOCLOPRAMIDE
     Dosage: UNK
     Dates: end: 20220703
  40. ALFACALCIDOL [Concomitant]
     Active Substance: ALFACALCIDOL
     Indication: Osteoporosis
     Dosage: UNK
  41. OLANZAPINE [Concomitant]
     Active Substance: OLANZAPINE
     Indication: Prophylaxis of nausea and vomiting
     Dosage: UNK
     Dates: start: 20220808, end: 202303
  42. Fesin [Concomitant]
     Dosage: UNK
     Dates: start: 20220606, end: 20220808
  43. SODIUM CHLORIDE [Concomitant]
     Active Substance: SODIUM CHLORIDE
     Indication: Microcytic anaemia
     Dosage: UNK
     Dates: start: 20220606, end: 20220808
  44. SODIUM FERROUS CITRATE [Concomitant]
     Active Substance: SODIUM FERROUS CITRATE
     Indication: Microcytic anaemia
     Dosage: UNK
     Dates: start: 20230413

REACTIONS (24)
  - Enterocolitis [Recovering/Resolving]
  - Hypokalaemia [Recovering/Resolving]
  - Hypokalaemia [Recovering/Resolving]
  - Malaise [Recovering/Resolving]
  - Diarrhoea [Recovering/Resolving]
  - Abdominal pain [Recovering/Resolving]
  - Decreased appetite [Recovering/Resolving]
  - Blood lactate dehydrogenase increased [Recovering/Resolving]
  - Alanine aminotransferase increased [Not Recovered/Not Resolved]
  - Alanine aminotransferase increased [Not Recovered/Not Resolved]
  - Aspartate aminotransferase increased [Not Recovered/Not Resolved]
  - C-reactive protein increased [Not Recovered/Not Resolved]
  - Gamma-glutamyltransferase increased [Not Recovered/Not Resolved]
  - Hyponatraemia [Recovering/Resolving]
  - Angular cheilitis [Recovered/Resolved]
  - Neutrophil count decreased [Recovering/Resolving]
  - Pyrexia [Recovering/Resolving]
  - White blood cell count decreased [Recovering/Resolving]
  - Diarrhoea [Recovering/Resolving]
  - Abdominal pain [Recovered/Resolved]
  - Stomatitis [Recovering/Resolving]
  - Hypoaesthesia [Not Recovered/Not Resolved]
  - Weight decreased [Recovered/Resolved]
  - Intentional product use issue [Unknown]

NARRATIVE: CASE EVENT DATE: 20220606
